FAERS Safety Report 5900728-8 (Version None)
Quarter: 2008Q3

REPORT INFORMATION
  Report Type: 
  Country: None (occurrence: None)
  Receive Date: 20080928
  Receipt Date: 20080922
  Transmission Date: 20090109
  Serious: Yes (Other)
  Sender: FDA-Public Use
  Company Number: US-BAYER-200830512NA

PATIENT
  Age: 29 Year
  Sex: Male

DRUGS (2)
  1. MAGNEVIST [Suspect]
     Indication: NUCLEAR MAGNETIC RESONANCE IMAGING
     Dates: start: 20061030, end: 20061030
  2. OMNISCAN [Suspect]
     Indication: NUCLEAR MAGNETIC RESONANCE IMAGING
     Dates: start: 20060831, end: 20060831

REACTIONS (17)
  - ANHEDONIA [None]
  - ANXIETY [None]
  - EMOTIONAL DISTRESS [None]
  - EXFOLIATIVE RASH [None]
  - FIBROSIS [None]
  - GENERAL PHYSICAL HEALTH DETERIORATION [None]
  - INJURY [None]
  - JOINT STIFFNESS [None]
  - MOBILITY DECREASED [None]
  - NEPHROGENIC SYSTEMIC FIBROSIS [None]
  - OEDEMA PERIPHERAL [None]
  - PAIN [None]
  - PAIN OF SKIN [None]
  - QUALITY OF LIFE DECREASED [None]
  - RASH MACULAR [None]
  - SCAR [None]
  - SKIN FIBROSIS [None]
